FAERS Safety Report 18713353 (Version 1)
Quarter: 2021Q1

REPORT INFORMATION
  Report Type: Spontaneous
  Country: US (occurrence: US)
  Receive Date: 20210107
  Receipt Date: 20210107
  Transmission Date: 20210419
  Serious: Yes (Death, Hospitalization)
  Sender: FDA-Public Use
  Company Number: US-ALVOGEN-2021-ALVOGEN-115802

PATIENT
  Age: 70 Year
  Sex: Female

DRUGS (6)
  1. MELOXICAM. [Suspect]
     Active Substance: MELOXICAM
     Indication: SUICIDE ATTEMPT
     Dosage: ROUTE OF ADMINISTRATION: INGST
  2. APIXABAN [Suspect]
     Active Substance: APIXABAN
     Indication: SUICIDE ATTEMPT
     Dosage: ROUTE OF ADMINISTRATION: INGST
  3. GABAPENTIN. [Suspect]
     Active Substance: GABAPENTIN
     Indication: SUICIDE ATTEMPT
     Dosage: ROUTE OF ADMINISTRATION: INGST
  4. AMIODARONE [Suspect]
     Active Substance: AMIODARONE
     Indication: SUICIDE ATTEMPT
     Dosage: ROUTE OF ADMINISTRATION: INGST
  5. OMEPRAZOLE. [Suspect]
     Active Substance: OMEPRAZOLE
     Indication: SUICIDE ATTEMPT
     Dosage: ROUTE OF ADMINISTRATION: INGST
  6. DIGOXIN. [Suspect]
     Active Substance: DIGOXIN
     Indication: SUICIDE ATTEMPT
     Dosage: ROUTE OF ADMINISTRATION: INGST

REACTIONS (1)
  - Completed suicide [Fatal]
